FAERS Safety Report 10403025 (Version 3)
Quarter: 2014Q3

REPORT INFORMATION
  Report Type: Report from Study
  Country: JP (occurrence: JP)
  Receive Date: 20140822
  Receipt Date: 20140908
  Transmission Date: 20150326
  Serious: Yes (Hospitalization)
  Sender: FDA-Public Use
  Company Number: JP-SHIONOGI, INC-2014000693

PATIENT
  Age: 10 Year
  Sex: Female
  Weight: 26 kg

DRUGS (39)
  1. URSO [Concomitant]
     Active Substance: URSODIOL
     Indication: PROPHYLAXIS
     Dosage: 150 MG, QD
     Route: 048
  2. VENETLIN [Concomitant]
     Active Substance: ALBUTEROL SULFATE
     Indication: PROPHYLAXIS
     Dosage: 0.3 ML, QD
     Route: 065
     Dates: start: 20131125, end: 20131125
  3. NEOPAREN [Concomitant]
     Active Substance: AMINO ACIDS\DEXTROSE\ELECTROLYTES NOS
     Indication: PROPHYLAXIS
     Dosage: UNK
     Route: 065
     Dates: start: 20131107, end: 20131128
  4. SODIUM PHOSPHATE [Concomitant]
     Active Substance: SODIUM PHOSPHATE
     Indication: PROPHYLAXIS
     Dosage: UNK
     Route: 065
     Dates: start: 20131116, end: 20131203
  5. MEYLON [Concomitant]
     Active Substance: SODIUM BICARBONATE
     Indication: PROPHYLAXIS
     Dosage: UNK
     Route: 065
     Dates: end: 20131107
  6. LASIX [Concomitant]
     Active Substance: FUROSEMIDE
     Indication: PROPHYLAXIS
     Dosage: 10 MG, QD
     Route: 065
     Dates: start: 20131121, end: 20131121
  7. MAGNESIUM SULFATE IN DEXTROSE [Concomitant]
     Active Substance: MAGNESIUM SULFATE
     Dosage: UNK
     Route: 065
     Dates: start: 20131111, end: 20131203
  8. PENTCILLIN [Concomitant]
     Active Substance: PIPERACILLIN SODIUM
     Indication: PROPHYLAXIS
     Dosage: 1 G, TID
     Route: 065
     Dates: start: 20131107, end: 20131112
  9. VICCLOX                            /00587301/ [Concomitant]
     Active Substance: ACYCLOVIR SODIUM
     Indication: PROPHYLAXIS
     Dosage: 200 MG, TID
     Route: 048
     Dates: start: 20131126, end: 20131211
  10. NEOPAREN [Concomitant]
     Active Substance: AMINO ACIDS\DEXTROSE\ELECTROLYTES NOS
     Indication: PROPHYLAXIS
     Dosage: UNK
     Route: 065
     Dates: start: 20131128, end: 20131203
  11. TAKEPRON [Concomitant]
     Active Substance: LANSOPRAZOLE
     Indication: PROPHYLAXIS
     Dosage: 1 DF, QD
     Route: 048
     Dates: start: 20131128
  12. DORIPENEM [Suspect]
     Active Substance: DORIPENEM
     Indication: FEBRILE NEUTROPENIA
     Dosage: 1000 MG, TID
     Route: 041
     Dates: start: 20131113, end: 20131119
  13. PENTCILLIN [Concomitant]
     Active Substance: PIPERACILLIN SODIUM
     Dosage: 1 G, TID
     Route: 065
     Dates: start: 20131202, end: 20131207
  14. POLYMYXIN B [Concomitant]
     Active Substance: POLYMYXIN B
     Indication: PROPHYLAXIS
     Dosage: 3 DF, TID
     Route: 048
     Dates: end: 20131123
  15. ACICLOVIR [Concomitant]
     Active Substance: ACYCLOVIR
     Indication: PROPHYLAXIS
     Dosage: 600 MG, TID
     Route: 065
     Dates: start: 20131105, end: 20131126
  16. ATARAX [Concomitant]
     Active Substance: HYDROXYZINE\HYDROXYZINE HYDROCHLORIDE
     Indication: PROPHYLAXIS
     Dosage: 25 MG, QD
     Route: 065
     Dates: start: 20131114, end: 20131114
  17. FAMOTIDINE. [Concomitant]
     Active Substance: FAMOTIDINE
     Indication: PROPHYLAXIS
     Dosage: 20 MG, QD
     Route: 065
     Dates: start: 20131108, end: 20131125
  18. GRAN [Concomitant]
     Active Substance: FILGRASTIM
     Indication: BONE MARROW FAILURE
     Dosage: 300 ?G, QD
     Route: 065
     Dates: start: 20131111, end: 20131124
  19. SOLDEM 3AG [Concomitant]
     Indication: PROPHYLAXIS
     Dosage: UNK
     Route: 065
     Dates: start: 20131203
  20. FLUDARA [Suspect]
     Active Substance: FLUDARABINE PHOSPHATE
     Dosage: UNK
     Route: 065
  21. METHOTREXATE [Suspect]
     Active Substance: METHOTREXATE
     Dosage: UNK
     Route: 065
  22. MAGNESIUM SULFATE IN DEXTROSE [Concomitant]
     Active Substance: MAGNESIUM SULFATE
     Indication: PROPHYLAXIS
     Dosage: UNK
     Route: 065
     Dates: start: 20131204
  23. SEISHOKU [Concomitant]
     Active Substance: SODIUM CHLORIDE
     Indication: PROPHYLAXIS
     Dosage: UNK
     Route: 065
     Dates: start: 20131107, end: 20131203
  24. POTASSIUM CHLORIDE. [Concomitant]
     Active Substance: POTASSIUM CHLORIDE
     Indication: PROPHYLAXIS
     Dosage: UNK
     Route: 065
     Dates: start: 20131116, end: 20131203
  25. ALKERAN [Suspect]
     Active Substance: MELPHALAN
     Dosage: UNK
     Route: 065
  26. SOLDEM 1 [Concomitant]
     Indication: PROPHYLAXIS
     Dosage: UNK
     Route: 065
     Dates: end: 20131107
  27. SOL-MELCORT [Concomitant]
     Active Substance: METHYLPREDNISOLONE SODIUM SUCCINATE
     Indication: PROPHYLAXIS
     Dosage: 62.5 MG, QD
     Route: 065
     Dates: start: 20131114, end: 20131114
  28. FUNGUARD [Concomitant]
     Active Substance: MICAFUNGIN SODIUM
     Indication: PROPHYLAXIS
     Dosage: 50 MG, QD
     Route: 065
     Dates: start: 20131104, end: 20131105
  29. FUNGUARD [Concomitant]
     Active Substance: MICAFUNGIN SODIUM
     Dosage: 50 MG, QD
     Route: 065
     Dates: start: 20131108, end: 20131208
  30. BENAMBAX [Interacting]
     Active Substance: PENTAMIDINE
     Indication: PROPHYLAXIS
     Dosage: 300 MG, QD
     Route: 065
     Dates: start: 20131125, end: 20131125
  31. MORPHINE HYDROCHLORIDE [Concomitant]
     Active Substance: MORPHINE HYDROCHLORIDE
     Indication: MUCOUS MEMBRANE DISORDER
     Dosage: UNK
     Route: 065
     Dates: start: 20131113, end: 20131125
  32. ROPION [Concomitant]
     Active Substance: FLURBIPROFEN AXETIL
     Indication: MUCOUS MEMBRANE DISORDER
     Dosage: UNK
     Route: 065
     Dates: start: 20131111, end: 20131204
  33. CEFAZOLIN SODIUM. [Concomitant]
     Active Substance: CEFAZOLIN SODIUM
     Indication: PROPHYLAXIS
     Dosage: 1 G, BID
     Route: 065
     Dates: start: 20131112, end: 20131113
  34. CIPROXAN                           /00697202/ [Concomitant]
     Active Substance: CIPROFLOXACIN
     Indication: FEBRILE NEUTROPENIA
     Dosage: 250 MG, BID
     Route: 065
     Dates: start: 20131119, end: 20131125
  35. PROGRAF [Concomitant]
     Active Substance: TACROLIMUS\TACROLIMUS ANHYDROUS
     Indication: PROPHYLAXIS
     Dosage: UNK
     Route: 065
     Dates: start: 20131105, end: 20131212
  36. HISHIPHAGEN C [Concomitant]
     Indication: HEPATIC FUNCTION ABNORMAL
     Dosage: 20 ML, QD
     Route: 065
     Dates: start: 20131122, end: 20131125
  37. VENILON [Concomitant]
     Active Substance: HUMAN IMMUNOGLOBULIN G
     Indication: PROPHYLAXIS
     Dosage: 2.5 G, QD
     Route: 065
     Dates: start: 20131119, end: 20131119
  38. MINERAMIC [Concomitant]
     Indication: PROPHYLAXIS
     Dosage: UNK
     Route: 065
     Dates: start: 20131107, end: 20131203
  39. DALTEPARIN SODIUM [Concomitant]
     Active Substance: DALTEPARIN SODIUM
     Indication: PROPHYLAXIS
     Dosage: UNK
     Route: 065
     Dates: start: 20131105, end: 20131212

REACTIONS (4)
  - Pyrexia [Recovering/Resolving]
  - Hyperbilirubinaemia [Recovered/Resolved]
  - Hepatic function abnormal [Recovering/Resolving]
  - Graft versus host disease in skin [Recovering/Resolving]

NARRATIVE: CASE EVENT DATE: 20131119
